FAERS Safety Report 9387895 (Version 1)
Quarter: 2013Q3

REPORT INFORMATION
  Report Type: Spontaneous
  Country: US (occurrence: None)
  Receive Date: 20130701
  Receipt Date: 20130701
  Transmission Date: 20140515
  Serious: Yes (Hospitalization, Disabling)
  Sender: FDA-Public Use
  Company Number: 1769018

PATIENT
  Age: 16 Year
  Sex: Female

DRUGS (6)
  1. FLUDARABINE PHOSPHATE [Suspect]
     Dosage: 1 DAY
     Route: 041
  2. THIOTEPA [Concomitant]
  3. MELPHALAN [Concomitant]
  4. OKT-3 [Concomitant]
  5. MYCOPHENOLATE [Concomitant]
  6. MEPERIDINE [Concomitant]

REACTIONS (1)
  - Leukoencephalopathy [None]
